FAERS Safety Report 17460900 (Version 1)
Quarter: 2020Q1

REPORT INFORMATION
  Report Type: Spontaneous
  Country: CN (occurrence: CN)
  Receive Date: 20200226
  Receipt Date: 20200226
  Transmission Date: 20200409
  Serious: Yes (Other)
  Sender: FDA-Public Use
  Company Number: CN-ASTRAZENECA-2020SE27367

PATIENT
  Age: 55 Year
  Sex: Male
  Weight: 54 kg

DRUGS (2)
  1. PULMICORT RESPULES [Suspect]
     Active Substance: BUDESONIDE
     Indication: INCREASED BRONCHIAL SECRETION
     Route: 055
     Dates: start: 20190829, end: 20190901
  2. BRICANYL [Suspect]
     Active Substance: TERBUTALINE SULFATE
     Indication: INCREASED BRONCHIAL SECRETION
     Route: 055
     Dates: start: 20190829, end: 20190901

REACTIONS (3)
  - Hypoaesthesia oral [Recovering/Resolving]
  - Seizure [Recovering/Resolving]
  - Hypoaesthesia [Recovering/Resolving]

NARRATIVE: CASE EVENT DATE: 20190829
